FAERS Safety Report 7836862-5 (Version None)
Quarter: 2011Q4

REPORT INFORMATION
  Report Type: 
  Country: None (occurrence: None)
  Receive Date: 20111024
  Receipt Date: 20101208
  Transmission Date: 20120403
  Serious: No
  Sender: FDA-Public Use
  Company Number: US-ABBOTT-10P-163-0690189-00

PATIENT
  Sex: Female

DRUGS (3)
  1. BCP'S [Concomitant]
     Dates: end: 20101207
  2. LUPRON DEPOT [Suspect]
     Indication: PRODUCT USED FOR UNKNOWN INDICATION
  3. ASPIRIN [Concomitant]
     Indication: PRODUCT USED FOR UNKNOWN INDICATION
     Dosage: DAILY
     Dates: start: 20100101

REACTIONS (2)
  - HEADACHE [None]
  - MENOPAUSAL SYMPTOMS [None]
